FAERS Safety Report 5955742-3 (Version None)
Quarter: 2008Q4

REPORT INFORMATION
  Report Type: 
  Country: None (occurrence: None)
  Receive Date: 20081117
  Receipt Date: 20081110
  Transmission Date: 20090506
  Serious: No
  Sender: FDA-Public Use
  Company Number: US-B.I. PHARMACEUTICALS,INC./RIDGEFIELD-2008-BP-17037BP

PATIENT
  Age: 68 Year
  Sex: Female

DRUGS (3)
  1. MIRAPEX [Suspect]
     Indication: RESTLESS LEGS SYNDROME
     Dosage: .125MG
     Route: 048
     Dates: start: 20080301, end: 20081001
  2. NEXIUM [Concomitant]
     Indication: GASTRIC DISORDER
  3. MIACALCIN [Concomitant]
     Indication: BONE DISORDER

REACTIONS (1)
  - MUSCLE TWITCHING [None]
